FAERS Safety Report 11525568 (Version 1)
Quarter: 2015Q3

REPORT INFORMATION
  Report Type: Spontaneous
  Country: US (occurrence: US)
  Receive Date: 20150918
  Receipt Date: 20150918
  Transmission Date: 20151125
  Serious: Yes (Other)
  Sender: FDA-Public Use
  Company Number: US-TAKEDA-TPA2012A01849

PATIENT

DRUGS (5)
  1. ACTOS [Suspect]
     Active Substance: PIOGLITAZONE HYDROCHLORIDE
     Indication: TYPE 2 DIABETES MELLITUS
     Dates: start: 20101115, end: 20120209
  2. ONGLYZA [Concomitant]
     Active Substance: SAXAGLIPTIN HYDROCHLORIDE
     Dates: start: 20120209
  3. LANTUS [Concomitant]
     Active Substance: INSULIN GLARGINE
     Dates: start: 201009
  4. AVANDIA [Concomitant]
     Active Substance: ROSIGLITAZONE MALEATE
     Dates: start: 20100215, end: 20101114
  5. AMARYL [Concomitant]
     Active Substance: GLIMEPIRIDE
     Dates: start: 20100706

REACTIONS (7)
  - Hyperglycaemia [Unknown]
  - Haematuria [Unknown]
  - Haematemesis [Unknown]
  - Hypotension [Unknown]
  - Haematochezia [Unknown]
  - Gastrointestinal haemorrhage [Unknown]
  - Chronic kidney disease [Unknown]

NARRATIVE: CASE EVENT DATE: 201103
